FAERS Safety Report 8908715 (Version 1)
Quarter: 2012Q4

REPORT INFORMATION
  Report Type: 
  Country: US (occurrence: US)
  Receive Date: 20121114
  Receipt Date: 20121114
  Transmission Date: 20130627
  Serious: Yes (Death)
  Sender: FDA-Public Use
  Company Number: PHEH2012US022372

PATIENT
  Sex: Male

DRUGS (2)
  1. GLEEVEC [Suspect]
     Dosage: 400 mg, UNK
     Route: 048
     Dates: start: 20120106
  2. ENOXAPARIN [Concomitant]
     Dosage: 120 mg, UNK

REACTIONS (1)
  - Death [Fatal]
